FAERS Safety Report 6691414-8 (Version None)
Quarter: 2010Q2

REPORT INFORMATION
  Report Type: 
  Country: None (occurrence: None)
  Receive Date: 20100422
  Receipt Date: 20100415
  Transmission Date: 20101027
  Serious: No
  Sender: FDA-Public Use
  Company Number: US-RB-004652-10

PATIENT
  Age: 29 Year
  Sex: Female

DRUGS (1)
  1. SUBOXONE [Suspect]
     Dosage: OTHER DOSING DETAILS UNKNOWN
     Route: 060
     Dates: start: 20100225

REACTIONS (7)
  - ANXIETY [None]
  - DIARRHOEA [None]
  - FATIGUE [None]
  - INSOMNIA [None]
  - LOGORRHOEA [None]
  - NAUSEA [None]
  - SOMNOLENCE [None]
